FAERS Safety Report 4615302-3 (Version None)
Quarter: 2005Q1

REPORT INFORMATION
  Report Type: 
  Country: None (occurrence: None)
  Receive Date: 20050317
  Receipt Date: 20050308
  Transmission Date: 20050727
  Serious: Yes (Life-Threatening, Hospitalization)
  Sender: FDA-Public Use
  Company Number: 200510048BYL

PATIENT
  Age: 46 Year
  Sex: Female
  Weight: 80 kg

DRUGS (6)
  1. ADALAT [Suspect]
     Dosage: ORAL
     Route: 048
     Dates: start: 20040901, end: 20050117
  2. SHIOSOL (SODIUM AUROTHIOMALATE) [Suspect]
     Indication: RHEUMATOID ARTHRITIS
     Dosage: ONCE, INTRAMUSCULAR
     Route: 030
     Dates: start: 20050117
  3. VECTACIN [Concomitant]
  4. HIBERNA [Concomitant]
  5. LEVOTOMIN [Concomitant]
  6. RISPERDAL [Concomitant]

REACTIONS (6)
  - ERYTHEMA [None]
  - FACE OEDEMA [None]
  - OLIGURIA [None]
  - PYREXIA [None]
  - RENAL DISORDER [None]
  - SHOCK [None]
